FAERS Safety Report 4434026-9 (Version None)
Quarter: 2004Q3

REPORT INFORMATION
  Report Type: 
  Country: None (occurrence: None)
  Receive Date: 20040825
  Receipt Date: 20040805
  Transmission Date: 20050211
  Serious: Yes (Death, Life-Threatening, Hospitalization)
  Sender: FDA-Public Use
  Company Number: US_0407104450

PATIENT
  Age: 65 Year
  Sex: Male
  Weight: 73 kg

DRUGS (9)
  1. PEMETREXED [Suspect]
     Indication: OESOPHAGEAL CARCINOMA
     Dosage: 500 MG/M2
     Dates: start: 20040716
  2. GEMCITABINE HYDROCHLORIDE-IV (GEMCITABINE) [Suspect]
     Indication: OESOPHAGEAL CARCINOMA
     Dosage: 2000 MG/M2
     Dates: start: 20040716
  3. OXYCODONE HCL [Concomitant]
  4. OXYCONTIN [Concomitant]
  5. CHERACOL [Concomitant]
  6. VITAMIN B12 FOR INJECTION (CYANOCOBALAMIN) [Concomitant]
  7. DECADRON [Concomitant]
  8. MULTI-VITAMIN [Concomitant]
  9. RESTORIL (TEMAZAPAM) [Concomitant]

REACTIONS (14)
  - ATRIAL FIBRILLATION [None]
  - COMA [None]
  - CONSTIPATION [None]
  - DECREASED APPETITE [None]
  - DEPRESSED LEVEL OF CONSCIOUSNESS [None]
  - FEELING ABNORMAL [None]
  - HEADACHE [None]
  - HEPATIC FAILURE [None]
  - HEPATITIS ACUTE [None]
  - LOSS OF CONSCIOUSNESS [None]
  - PRODUCTIVE COUGH [None]
  - RENAL FAILURE [None]
  - RESPIRATORY FAILURE [None]
  - TREATMENT NONCOMPLIANCE [None]
